FAERS Safety Report 4820137-2 (Version None)
Quarter: 2005Q4

REPORT INFORMATION
  Report Type: 
  Country: None (occurrence: None)
  Receive Date: 20051027
  Receipt Date: 20050307
  Transmission Date: 20060501
  Serious: Yes (Hospitalization, Other)
  Sender: FDA-Public Use
  Company Number: HQWYE001910MAR05

PATIENT
  Age: 65 Year
  Sex: Female

DRUGS (4)
  1. PREMARIN [Suspect]
  2. CYCRIN [Suspect]
  3. ESTRACE [Suspect]
  4. ESTRADIOL [Suspect]

REACTIONS (1)
  - OVARIAN CANCER [None]
